FAERS Safety Report 15654027 (Version 2)
Quarter: 2018Q4

REPORT INFORMATION
  Report Type: Spontaneous
  Country: HR (occurrence: HR)
  Receive Date: 20181125
  Receipt Date: 20181130
  Transmission Date: 20190205
  Serious: Yes (Other)
  Sender: FDA-Public Use
  Company Number: HR-SYNTHON BV-NL01PV18_47688

PATIENT
  Age: 62 Year
  Sex: Male

DRUGS (3)
  1. EUTHYROX [Concomitant]
     Active Substance: LEVOTHYROXINE SODIUM
     Indication: THYROIDECTOMY
     Dosage: 75 ?G, QD
     Route: 048
     Dates: start: 2013
  2. BRUFEN                             /00109201/ [Concomitant]
     Active Substance: IBUPROFEN
     Indication: RHEUMATIC DISORDER
     Dosage: 600 MG, QD
     Route: 048
     Dates: start: 2013
  3. FLOSIN [Suspect]
     Active Substance: TAMSULOSIN
     Indication: PROSTATOMEGALY
     Dosage: 0.4 MG, QD
     Route: 048
     Dates: start: 20180118, end: 20180414

REACTIONS (9)
  - Eye pruritus [Unknown]
  - Constipation [Unknown]
  - Blood urine present [Unknown]
  - Urinary tract infection [Unknown]
  - Mental disorder [Unknown]
  - Asphyxia [Unknown]
  - Gastritis [Unknown]
  - Bladder neoplasm [Unknown]
  - Diarrhoea [Unknown]

NARRATIVE: CASE EVENT DATE: 2018
